FAERS Safety Report 8834374 (Version 1)
Quarter: 2012Q4

REPORT INFORMATION
  Report Type: Spontaneous
  Country: US (occurrence: None)
  Receive Date: 20121010
  Receipt Date: 20121010
  Transmission Date: 20130627
  Serious: No
  Sender: FDA-Public Use
  Company Number: None

PATIENT
  Age: 68 Year
  Sex: Male
  Weight: 79.38 kg

DRUGS (1)
  1. BUSPIRONE [Suspect]
     Indication: ANXIETY
     Route: 048
     Dates: start: 20120915, end: 20120920

REACTIONS (4)
  - Confusional state [None]
  - Dizziness [None]
  - Agitation [None]
  - Nausea [None]
